FAERS Safety Report 4538607-3 (Version None)
Quarter: 2004Q4

REPORT INFORMATION
  Report Type: 
  Country: None (occurrence: None)
  Receive Date: 20041222
  Receipt Date: 20041206
  Transmission Date: 20050328
  Serious: Yes (Other)
  Sender: FDA-Public Use
  Company Number: 2004-BP-06126NB (2)

PATIENT
  Age: 67 Year
  Sex: Female

DRUGS (5)
  1. BI-SIFROL TABLETS (PRAMIPEXOLE DIHYDROCHLORIDE) (TA) [Suspect]
     Indication: PARKINSON'S DISEASE
     Dosage: 0.25 MG (NR) PO
     Route: 048
     Dates: start: 20040715, end: 20040721
  2. MADOPAR [Concomitant]
  3. NAUZELIN (DOMPERIDONE) [Concomitant]
  4. EXCEGRAN (ZONISAMIDE) [Concomitant]
  5. LIPOVAS [Concomitant]

REACTIONS (2)
  - LEUKOPENIA [None]
  - RASH [None]
